FAERS Safety Report 10575364 (Version 1)
Quarter: 2014Q4

REPORT INFORMATION
  Report Type: Spontaneous
  Country: US (occurrence: None)
  Receive Date: 20141107
  Receipt Date: 20141107
  Transmission Date: 20150529
  Serious: Yes (Other)
  Sender: FDA-Public Use
  Company Number: DEP_02307_2014

PATIENT
  Sex: Female
  Weight: 59.42 kg

DRUGS (19)
  1. GRALISE [Suspect]
     Active Substance: GABAPENTIN
     Indication: OFF LABEL USE
     Dosage: BRIEF TITRATION PERIOD, SAMPLE PACK, IN THE EVENING, DF ORAL)
     Route: 048
     Dates: start: 20140612
  2. CHLORZOXAZONE. [Concomitant]
     Active Substance: CHLORZOXAZONE
  3. COQ10 /00517201/ [Concomitant]
  4. DULOXETINE [Concomitant]
     Active Substance: DULOXETINE
  5. TRAZODONE [Concomitant]
     Active Substance: TRAZODONE HYDROCHLORIDE
  6. FISH OIL [Concomitant]
     Active Substance: FISH OIL
  7. FIBER [Concomitant]
     Active Substance: PSYLLIUM HUSK
  8. CALCIUM [Concomitant]
     Active Substance: CALCIUM
  9. METHADONE [Concomitant]
     Active Substance: METHADONE HYDROCHLORIDE
  10. FIORINAL [Concomitant]
     Active Substance: ASPIRIN\BUTALBITAL\CAFFEINE
  11. CYMBALTA [Concomitant]
     Active Substance: DULOXETINE HYDROCHLORIDE
  12. SOTOLOL [Concomitant]
     Active Substance: SOTALOL
  13. VITAMIN B COMPLEX [Concomitant]
     Active Substance: CYANOCOBALAMIN\DEXPANTHENOL\NIACINAMIDE\PYRIDOXINE HYDROCHLORIDE\RIBOFLAVIN 5^-PHOSPHATE SODIUM\THIAMINE HYDROCHLORIDE\VITAMIN B COMPLEX
  14. MORPHINE [Concomitant]
     Active Substance: MORPHINE
  15. GRALISE [Suspect]
     Active Substance: GABAPENTIN
     Indication: FIBROMYALGIA
     Dosage: BRIEF TITRATION PERIOD, SAMPLE PACK, IN THE EVENING, DF ORAL)
     Route: 048
     Dates: start: 20140612
  16. VITAMIN D3 [Concomitant]
     Active Substance: CHOLECALCIFEROL
  17. LIPITOR [Concomitant]
     Active Substance: ATORVASTATIN CALCIUM
  18. IMITREX [Concomitant]
     Active Substance: SUMATRIPTAN\SUMATRIPTAN SUCCINATE
  19. GRALISE [Suspect]
     Active Substance: GABAPENTIN
     Indication: NEURALGIA
     Dosage: BRIEF TITRATION PERIOD, SAMPLE PACK, IN THE EVENING, DF ORAL)
     Route: 048
     Dates: start: 20140612

REACTIONS (17)
  - Feeling jittery [None]
  - Incoherent [None]
  - Aphasia [None]
  - Constipation [None]
  - Middle insomnia [None]
  - Asthenia [None]
  - Feeling abnormal [None]
  - Abasia [None]
  - Medication residue present [None]
  - Dizziness [None]
  - Condition aggravated [None]
  - Irritable bowel syndrome [None]
  - Pain [None]
  - Sedation [None]
  - Disease recurrence [None]
  - Fall [None]
  - Emotional disorder [None]

NARRATIVE: CASE EVENT DATE: 2014
